FAERS Safety Report 7825599-4 (Version None)
Quarter: 2011Q4

REPORT INFORMATION
  Report Type: 
  Country: None (occurrence: None)
  Receive Date: 20111019
  Receipt Date: 20111011
  Transmission Date: 20120403
  Serious: Yes (Hospitalization)
  Sender: FDA-Public Use
  Company Number: US-ALLERGAN-1113427US

PATIENT
  Age: 38 Year
  Sex: Female
  Weight: 90.703 kg

DRUGS (1)
  1. BOTOX COSMETIC [Suspect]
     Indication: SKIN WRINKLING
     Dosage: 16 UNITS, 5 SHOTS
     Route: 003
     Dates: start: 20110401, end: 20110401

REACTIONS (4)
  - SWOLLEN TONGUE [None]
  - DYSPHAGIA [None]
  - FOREIGN BODY [None]
  - PHARYNGEAL OEDEMA [None]
